FAERS Safety Report 19191011 (Version 1)
Quarter: 2021Q2

REPORT INFORMATION
  Report Type: Spontaneous
  Country: IL (occurrence: IL)
  Receive Date: 20210428
  Receipt Date: 20210428
  Transmission Date: 20210717
  Serious: Yes (Other)
  Sender: FDA-Public Use
  Company Number: IL-TEVA-2021-IL-1904504

PATIENT
  Sex: Female

DRUGS (1)
  1. CARBOPLATIN TEVA 450MG/ML [Suspect]
     Active Substance: CARBOPLATIN
     Route: 065
     Dates: start: 20210404

REACTIONS (3)
  - Hyperhidrosis [Unknown]
  - Abdominal pain [Unknown]
  - Erythema [Unknown]

NARRATIVE: CASE EVENT DATE: 20210404
